FAERS Safety Report 23126847 (Version 2)
Quarter: 2023Q4

REPORT INFORMATION
  Report Type: Report from Study
  Country: US (occurrence: US)
  Receive Date: 20231030
  Receipt Date: 20231114
  Transmission Date: 20240110
  Serious: No
  Sender: FDA-Public Use
  Company Number: US-BoehringerIngelheim-2023-BI-269946

PATIENT
  Age: 58 Year
  Sex: Female

DRUGS (1)
  1. OFEV [Suspect]
     Active Substance: NINTEDANIB
     Indication: Idiopathic pulmonary fibrosis
     Route: 048
     Dates: start: 20231025

REACTIONS (5)
  - Vomiting [Recovered/Resolved]
  - Dysphonia [Not Recovered/Not Resolved]
  - Nausea [Recovering/Resolving]
  - Bronchitis [Unknown]
  - Aphonia [Unknown]

NARRATIVE: CASE EVENT DATE: 20231027
